FAERS Safety Report 13050158 (Version 2)
Quarter: 2017Q1

REPORT INFORMATION
  Report Type: Spontaneous
  Country: JP (occurrence: JP)
  Receive Date: 20161221
  Receipt Date: 20170110
  Transmission Date: 20170428
  Serious: Yes (Other)
  Sender: FDA-Public Use
  Company Number: JP-PFIZER INC-2016526683

PATIENT
  Age: 88 Year
  Sex: Female

DRUGS (11)
  1. REBAMIPIDE [Concomitant]
     Active Substance: REBAMIPIDE
     Dosage: 200 MG, DAILY
     Route: 048
  2. MICARDIS [Concomitant]
     Active Substance: TELMISARTAN
     Dosage: 40 MG, DAILY
     Route: 048
  3. MELOXICAM. [Concomitant]
     Active Substance: MELOXICAM
     Dosage: 1 MG, DAILY
     Route: 048
  4. MIYA-BM [Concomitant]
     Active Substance: CLOSTRIDIUM BUTYRICUM SPORES STRAIN M-55
     Dosage: 3 G, DAILY
     Route: 048
  5. CLOPIDOGREL [Concomitant]
     Active Substance: CLOPIDOGREL BISULFATE
     Dosage: 50 MG, DAILY
     Route: 048
  6. ETHYL ICOSAPENTATE [Concomitant]
     Active Substance: ICOSAPENT ETHYL
     Dosage: 1800 MG, DAILY
     Route: 048
  7. AMITIZA [Concomitant]
     Active Substance: LUBIPROSTONE
     Dosage: 24 UG, DAILY
     Route: 048
  8. JZOLOFT 25MG [Suspect]
     Active Substance: SERTRALINE HYDROCHLORIDE
     Dosage: 25 MG, DAILY
     Route: 048
     Dates: start: 20161105, end: 20161110
  9. MOSAPRIDE [Concomitant]
     Active Substance: MOSAPRIDE
     Dosage: 15 MG, DAILY
     Route: 048
  10. LANSOPRAZOLE. [Concomitant]
     Active Substance: LANSOPRAZOLE
     Dosage: 15 MG, DAILY
     Route: 048
  11. REMINYL [Concomitant]
     Active Substance: GALANTAMINE
     Dosage: 8 MG, DAILY
     Route: 048

REACTIONS (2)
  - Cerebral infarction [Recovering/Resolving]
  - Loss of consciousness [Unknown]

NARRATIVE: CASE EVENT DATE: 2016
